FAERS Safety Report 8342183-7 (Version None)
Quarter: 2012Q2

REPORT INFORMATION
  Report Type: 
  Country: None (occurrence: None)
  Receive Date: 20120507
  Receipt Date: 20120425
  Transmission Date: 20120825
  Serious: Yes (Other)
  Sender: FDA-Public Use
  Company Number: US-ROCHE-1063527

PATIENT
  Sex: Female
  Weight: 86.714 kg

DRUGS (9)
  1. METHOTREXATE [Concomitant]
  2. LEVOTHYROXINE SODIUM [Concomitant]
  3. FLEXERIL [Concomitant]
  4. ACTEMRA [Suspect]
     Indication: RHEUMATOID ARTHRITIS
     Route: 042
     Dates: start: 20111227
  5. TEGRETOL [Concomitant]
  6. FOLIC ACID [Concomitant]
  7. ACTEMRA [Suspect]
     Route: 042
     Dates: start: 20120124
  8. ACTEMRA [Suspect]
     Route: 042
     Dates: start: 20120221
  9. IMITREX [Concomitant]

REACTIONS (1)
  - HYPERGAMMAGLOBULINAEMIA [None]
